FAERS Safety Report 7835535-2 (Version None)
Quarter: 2011Q4

REPORT INFORMATION
  Report Type: 
  Country: None (occurrence: None)
  Receive Date: 20111024
  Receipt Date: 20111017
  Transmission Date: 20120403
  Serious: Yes (Other)
  Sender: FDA-Public Use
  Company Number: PHHY2011BR89329

PATIENT
  Sex: Female

DRUGS (1)
  1. ZOLEDRONOC ACID [Suspect]
     Dosage: 5 MG, UNK
     Route: 042

REACTIONS (5)
  - DRUG INEFFECTIVE [None]
  - PHLEBITIS [None]
  - PAIN [None]
  - DRUG ADMINISTRATION ERROR [None]
  - PYREXIA [None]
